FAERS Safety Report 11404975 (Version 4)
Quarter: 2015Q3

REPORT INFORMATION
  Report Type: Spontaneous
  Country: KR (occurrence: KR)
  Receive Date: 20150821
  Receipt Date: 20150917
  Transmission Date: 20151125
  Serious: Yes (Other)
  Sender: FDA-Public Use
  Company Number: KR-009507513-1508KOR005736

PATIENT
  Age: 68 Year
  Sex: Female
  Weight: 50 kg

DRUGS (19)
  1. PERDIPINE [Concomitant]
     Active Substance: NICARDIPINE HYDROCHLORIDE
     Indication: BLOOD PRESSURE INCREASED
     Dosage: 0.5 MG, BID
     Route: 042
     Dates: start: 20150727
  2. FENTANYL CITRATE. [Concomitant]
     Active Substance: FENTANYL CITRATE
     Indication: PAIN PROPHYLAXIS
     Dosage: 100 MICROGRAM, BID
     Route: 008
     Dates: start: 20150727, end: 20150727
  3. BRIDION [Suspect]
     Active Substance: SUGAMMADEX
     Indication: NEUROMUSCULAR BLOCKADE REVERSAL
     Dosage: 100 MG (2 MG/KG), ONCE
     Route: 042
     Dates: start: 20150727, end: 20150727
  4. FENTANYL CITRATE. [Concomitant]
     Active Substance: FENTANYL CITRATE
     Dosage: 1500 MICROGRAM, QD, INFUSION
     Route: 041
     Dates: start: 20150727, end: 20150730
  5. MOTILITONE [Concomitant]
     Active Substance: HERBALS
     Indication: PROPHYLAXIS
     Dosage: 1 TABLET, BID
     Route: 048
     Dates: start: 20150723, end: 20150725
  6. GASTER [Concomitant]
     Active Substance: FAMOTIDINE
     Indication: HAEMORRHAGE PROPHYLAXIS
     Dosage: 20 MG, QD
     Route: 042
     Dates: start: 20150727, end: 20150728
  7. COLYTE [Concomitant]
     Active Substance: POLYETHYLENE GLYCOL 3350\POTASSIUM CHLORIDE\SODIUM BICARBONATE\SODIUM CHLORIDE\SODIUM SULFATE ANHYDROUS
     Indication: COLONIC LAVAGE
     Dosage: 274.31G, QD
     Route: 048
     Dates: start: 20150726, end: 20150726
  8. AMBROXOL HYDROCHLORIDE [Concomitant]
     Active Substance: AMBROXOL HYDROCHLORIDE
     Indication: PROPHYLAXIS
     Dosage: 15 MG, TID
     Route: 042
     Dates: start: 20150727, end: 20150728
  9. ROCURONIUM BROMIDE. [Suspect]
     Active Substance: ROCURONIUM BROMIDE
     Dosage: 80 MG, ONCE
     Route: 042
     Dates: start: 20150727, end: 20150727
  10. NASEA [Concomitant]
     Active Substance: RAMOSETRON HYDROCHLORIDE
     Dosage: 0.6 MG, QD, INFUSION
     Route: 041
     Dates: start: 20150727, end: 20150730
  11. PACETIN [Concomitant]
     Indication: INFECTION PROPHYLAXIS
     Dosage: 1 G, BID
     Route: 042
     Dates: start: 20150727, end: 20150727
  12. ACUPAN [Concomitant]
     Active Substance: NEFOPAM HYDROCHLORIDE
     Dosage: 30 MG, ONCE
     Route: 048
     Dates: start: 20150727, end: 20150727
  13. ROCURONIUM BROMIDE. [Suspect]
     Active Substance: ROCURONIUM BROMIDE
     Indication: MUSCLE RELAXANT THERAPY
     Dosage: 50 MG, ONCE
     Route: 042
     Dates: start: 20150727, end: 20150727
  14. NASEA [Concomitant]
     Active Substance: RAMOSETRON HYDROCHLORIDE
     Indication: PROPHYLAXIS OF NAUSEA AND VOMITING
     Dosage: 0.3 MG, ONCE
     Route: 042
     Dates: start: 20150727, end: 20150727
  15. PETHIDINE HCL FRESENIUS [Concomitant]
     Indication: PAIN PROPHYLAXIS
     Dosage: 12.5 MG, ONCE
     Route: 042
     Dates: start: 20150727, end: 20150727
  16. ACUPAN [Concomitant]
     Active Substance: NEFOPAM HYDROCHLORIDE
     Indication: PAIN PROPHYLAXIS
     Dosage: 200 MG, QD, INFUSION
     Route: 041
     Dates: start: 20150727, end: 20150730
  17. STABLON [Concomitant]
     Active Substance: TIANEPTINE
     Indication: PROPHYLAXIS
     Dosage: 1 TABLET, BID
     Route: 048
     Dates: start: 20150723, end: 20150725
  18. ENAFON [Concomitant]
     Indication: PROPHYLAXIS
     Dosage: 10 MG, QD
     Route: 048
     Dates: start: 20150723, end: 20150725
  19. HALCION [Concomitant]
     Active Substance: TRIAZOLAM
     Indication: PROPHYLAXIS
     Dosage: 0.125 MG, QD
     Route: 048
     Dates: start: 20150727, end: 20150727

REACTIONS (4)
  - Musculoskeletal discomfort [Recovered/Resolved]
  - Headache [Recovered/Resolved]
  - Hypertensive crisis [Recovered/Resolved]
  - Nausea [Recovered/Resolved]

NARRATIVE: CASE EVENT DATE: 20150727
